FAERS Safety Report 4847366-6 (Version None)
Quarter: 2005Q4

REPORT INFORMATION
  Report Type: 
  Country: None (occurrence: None)
  Receive Date: 20051207
  Receipt Date: 20050826
  Transmission Date: 20060501
  Serious: Yes (Death, Hospitalization)
  Sender: FDA-Public Use
  Company Number: BR-ROCHE-415591

PATIENT
  Age: 79 Year
  Sex: Female

DRUGS (4)
  1. NAPROSYN [Suspect]
     Indication: SPINAL DISORDER
     Route: 048
     Dates: start: 20050620
  2. CAPTOPRIL [Concomitant]
     Dates: end: 20050812
  3. DOLAMIN [Concomitant]
     Indication: PAIN
  4. ANTI-INFLAMMATORY DRUG [Concomitant]
     Dosage: NAME OF DRUG REPORTED AS ^HIOSERIA^.
     Dates: start: 20050618

REACTIONS (6)
  - DEATH [None]
  - HEPATITIS TOXIC [None]
  - INTERVERTEBRAL DISCITIS [None]
  - PNEUMONIA [None]
  - PULMONARY OEDEMA [None]
  - SEPSIS [None]
